FAERS Safety Report 4470212-X (Version None)
Quarter: 2004Q4

REPORT INFORMATION
  Report Type: 
  Country: None (occurrence: None)
  Receive Date: 20041008
  Receipt Date: 20030826
  Transmission Date: 20050328
  Serious: Yes (Hospitalization)
  Sender: FDA-Public Use
  Company Number: FR-MERCK-0308FRA00036

PATIENT
  Age: 60 Year
  Sex: Female

DRUGS (1)
  1. COZAAR [Suspect]
     Indication: HYPERTENSION
     Route: 048
     Dates: start: 20010101, end: 20030801

REACTIONS (3)
  - GASTRITIS [None]
  - HYPOPROTEINAEMIA [None]
  - OEDEMA PERIPHERAL [None]
